FAERS Safety Report 6084652-9 (Version None)
Quarter: 2009Q1

REPORT INFORMATION
  Report Type: 
  Country: None (occurrence: None)
  Receive Date: 20090211
  Receipt Date: 20041203
  Transmission Date: 20090719
  Serious: Yes (Death)
  Sender: FDA-Public Use
  Company Number: US-WYE-H07135308

PATIENT
  Age: 41 Year
  Sex: Female
  Weight: 115 kg

DRUGS (12)
  1. EFFEXOR [Suspect]
  2. ACETAMINOPHEN [Suspect]
  3. CAFFEINE CITRATE [Suspect]
  4. CYCLOBENZAPRINE [Suspect]
  5. DIAZEPAM [Suspect]
  6. DOXEPIN HCL [Suspect]
  7. HYDROCODONE (HYDROCODONE, ) [Suspect]
  8. IBUPROFEN TABLETS [Suspect]
  9. LIDOCAINE [Suspect]
  10. NICOTINE [Suspect]
  11. OXYCODONE HCL [Suspect]
  12. PROMETHAZINE [Suspect]

REACTIONS (1)
  - ARTERIOSCLEROSIS [None]
